FAERS Safety Report 8598460-8 (Version None)
Quarter: 2012Q3

REPORT INFORMATION
  Report Type: 
  Country: None (occurrence: None)
  Receive Date: 20120816
  Receipt Date: 20120803
  Transmission Date: 20120928
  Serious: Yes (Hospitalization, Other)
  Sender: FDA-Public Use
  Company Number: PHHY2012BR070752

PATIENT
  Age: 69 Year
  Sex: Female

DRUGS (4)
  1. TEGRETOL [Suspect]
     Dosage: 200 MG, DAILY
     Dates: start: 20120711
  2. TEGRETOL [Suspect]
     Dosage: 800 MG, DAILY
  3. PHENOBARBITAL TAB [Suspect]
     Dosage: 50MG IN THE MORNING AND 50 MG IN THE EVENING
  4. PHENOBARBITAL TAB [Suspect]
     Dosage: 50MG IN THE MORNING, AND 100 MG AT NIGHT

REACTIONS (4)
  - CONVULSION [None]
  - DISORIENTATION [None]
  - DIZZINESS [None]
  - BLOOD SODIUM DECREASED [None]
